FAERS Safety Report 17426304 (Version 1)
Quarter: 2020Q1

REPORT INFORMATION
  Report Type: Spontaneous
  Country: ES (occurrence: ES)
  Receive Date: 20200217
  Receipt Date: 20200217
  Transmission Date: 20200409
  Serious: Yes (Death, Hospitalization)
  Sender: FDA-Public Use
  Company Number: ES-PFIZER INC-2020064475

PATIENT
  Age: 79 Year
  Sex: Female

DRUGS (5)
  1. METAMIZOLE [Suspect]
     Active Substance: METAMIZOLE
     Indication: PAIN
     Dosage: 1.2 G, 3X/DAY (EVERY 8 HOURS)
     Route: 042
     Dates: start: 20191208, end: 20191211
  2. MEROPENEM. [Suspect]
     Active Substance: MEROPENEM
     Indication: COLITIS
     Dosage: 1 G, 3X/DAY (EVERY 8 HOURS)
     Route: 042
     Dates: start: 20191126, end: 20191210
  3. METRONIDAZOLE. [Concomitant]
     Active Substance: METRONIDAZOLE
     Indication: COLITIS
     Dosage: 500 MG, 3X/DAY (EVERY 8 HOURS)
     Route: 048
     Dates: start: 20191119, end: 20191209
  4. METAMIZOLE MAGNESIUM [Suspect]
     Active Substance: METAMIZOLE MAGNESIUM
     Indication: PAIN
     Dosage: 575 MG, 3X/DAY (EVERY 8 HOURS)
     Route: 048
     Dates: start: 20191211, end: 20191215
  5. QUETIAPINE. [Suspect]
     Active Substance: QUETIAPINE
     Indication: AGITATION
     Dosage: 25 MG, 1X/DAY
     Route: 048
     Dates: start: 20191119, end: 20191215

REACTIONS (1)
  - Bicytopenia [Recovered/Resolved]

NARRATIVE: CASE EVENT DATE: 20191215
